FAERS Safety Report 16295451 (Version 1)
Quarter: 2019Q2

REPORT INFORMATION
  Report Type: Spontaneous
  Country: US (occurrence: US)
  Receive Date: 20190404
  Receipt Date: 20190404
  Transmission Date: 20190711
  Serious: Yes (Hospitalization)
  Sender: FDA-Public Use
  Company Number: None

PATIENT
  Age: 71 Year
  Sex: Male

DRUGS (12)
  1. LEVOTHYROXINE. [Concomitant]
     Active Substance: LEVOTHYROXINE
  2. FAMOTIDINE. [Concomitant]
     Active Substance: FAMOTIDINE
  3. ACYCLOVIR. [Concomitant]
     Active Substance: ACYCLOVIR
  4. PRAVASTATIN. [Concomitant]
     Active Substance: PRAVASTATIN
  5. CYCLOSPORINE MODIFIED [Suspect]
     Active Substance: CYCLOSPORINE
     Indication: MYELODYSPLASTIC SYNDROME
     Dosage: ?          OTHER FREQUENCY:QAM AND QPM;?
     Route: 048
     Dates: start: 20190301
  6. ROPINIROLE. [Concomitant]
     Active Substance: ROPINIROLE
  7. URSODIOL. [Concomitant]
     Active Substance: URSODIOL
  8. CYCLOSPORINE MODIFIED [Suspect]
     Active Substance: CYCLOSPORINE
     Indication: MYELODYSPLASTIC SYNDROME
     Dosage: ?          OTHER FREQUENCY:QAM AND QPM;?
     Route: 048
     Dates: start: 20190301
  9. MYCOPHENOLATE 500MG TAB [Suspect]
     Active Substance: MYCOPHENOLIC ACID
     Route: 048
     Dates: start: 20190301
  10. VORICONAZOLE. [Suspect]
     Active Substance: VORICONAZOLE
  11. BUPROPN HCL [Concomitant]
     Active Substance: BUPROPION HYDROCHLORIDE
  12. AMLODIPINE [Concomitant]
     Active Substance: AMLODIPINE BESYLATE

REACTIONS (2)
  - Graft versus host disease [None]
  - Diarrhoea [None]

NARRATIVE: CASE EVENT DATE: 201904
